FAERS Safety Report 7737822-5 (Version None)
Quarter: 2011Q3

REPORT INFORMATION
  Report Type: 
  Country: None (occurrence: None)
  Receive Date: 20110908
  Receipt Date: 20110830
  Transmission Date: 20111222
  Serious: Yes (Death, Hospitalization)
  Sender: FDA-Public Use
  Company Number: CA-JNJFOC-20110900694

PATIENT
  Sex: Male
  Weight: 38 kg

DRUGS (1)
  1. REMICADE [Suspect]
     Indication: CROHN'S DISEASE
     Route: 042
     Dates: start: 20060101

REACTIONS (2)
  - LARGE INTESTINE PERFORATION [None]
  - INTESTINAL OBSTRUCTION [None]
